FAERS Safety Report 7051353-X (Version None)
Quarter: 2010Q4

REPORT INFORMATION
  Report Type: 
  Country: None (occurrence: None)
  Receive Date: 20101018
  Receipt Date: 20101018
  Transmission Date: 20110411
  Serious: No
  Sender: FDA-Public Use
  Company Number: None

PATIENT
  Sex: Male
  Weight: 102.0593 kg

DRUGS (1)
  1. OMEPRAZOLE [Suspect]
     Dosage: 20 MG TWO PER DAY MOUTH
     Route: 048
     Dates: start: 20100801, end: 20100901

REACTIONS (2)
  - PAIN IN EXTREMITY [None]
  - SKIN IRRITATION [None]
